FAERS Safety Report 6593998-7 (Version None)
Quarter: 2010Q1

REPORT INFORMATION
  Report Type: 
  Country: None (occurrence: None)
  Receive Date: 20100222
  Receipt Date: 20100218
  Transmission Date: 20100710
  Serious: Yes (Hospitalization)
  Sender: FDA-Public Use
  Company Number: IT-TEVA-224812ISR

PATIENT
  Sex: Female

DRUGS (6)
  1. FLUOROURACIL [Suspect]
     Indication: BREAST CANCER
     Route: 042
     Dates: start: 20091124, end: 20091215
  2. VINORELBINE [Suspect]
     Indication: BREAST CANCER
     Route: 042
     Dates: start: 20091124, end: 20091215
  3. PREDNISONE [Concomitant]
     Indication: NEURALGIA
     Route: 048
     Dates: start: 20091030, end: 20100211
  4. ARTHROTEC [Concomitant]
     Indication: NEURALGIA
     Dosage: 75 MG/200 MICROGRAM
     Route: 048
     Dates: start: 20091012, end: 20100211
  5. OXYCODONE HCL [Concomitant]
     Indication: NEURALGIA
     Route: 048
     Dates: start: 20091012, end: 20100211
  6. PREGABALIN [Concomitant]
     Indication: FIBROMYALGIA
     Route: 048
     Dates: start: 20091103, end: 20100211

REACTIONS (4)
  - DIVERTICULITIS [None]
  - ENTEROVESICAL FISTULA [None]
  - PYREXIA [None]
  - STAPHYLOCOCCAL INFECTION [None]
